FAERS Safety Report 9263994 (Version 1)
Quarter: 2013Q2

REPORT INFORMATION
  Report Type: Spontaneous
  Country: FI (occurrence: FI)
  Receive Date: 20130430
  Receipt Date: 20130430
  Transmission Date: 20140414
  Serious: Yes (Other)
  Sender: FDA-Public Use
  Company Number: FI-BRISTOL-MYERS SQUIBB COMPANY-18820456

PATIENT
  Sex: 0

DRUGS (4)
  1. REYATAZ [Suspect]
     Route: 064
  2. RITONAVIR [Suspect]
     Route: 064
  3. RITONAVIR [Suspect]
     Route: 064
  4. LAMIVUDINE + ZIDOVUDINE [Suspect]
     Route: 064

REACTIONS (1)
  - Premature baby [Unknown]
